FAERS Safety Report 19386578 (Version 1)
Quarter: 2021Q2

REPORT INFORMATION
  Report Type: Report from Study
  Country: IT (occurrence: IT)
  Receive Date: 20210608
  Receipt Date: 20210608
  Transmission Date: 20210717
  Serious: Yes (Hospitalization)
  Sender: FDA-Public Use
  Company Number: IT-TEVA-2021-IT-1919493

PATIENT
  Age: 80 Year
  Sex: Female

DRUGS (9)
  1. LUVION [Concomitant]
     Dosage: 50MG
  2. PREGABALIN. [Suspect]
     Active Substance: PREGABALIN
     Indication: PRODUCT USED FOR UNKNOWN INDICATION
     Dosage: 25MG
     Route: 065
  3. PRAZENE [Concomitant]
     Active Substance: PRAZEPAM
  4. CLOZAPINE. [Suspect]
     Active Substance: CLOZAPINE
     Indication: PRODUCT USED FOR UNKNOWN INDICATION
     Dosage: 100MG
     Route: 065
  5. PANCLEUS [Concomitant]
  6. MADOPAR 100 MG + 25 MG CAPSULE RIGIDE [Concomitant]
     Active Substance: BENSERAZIDE HYDROCHLORIDE\LEVODOPA
  7. LASIX [Concomitant]
     Active Substance: FUROSEMIDE
     Dosage: 25MG
  8. MIRAPEXIN [Concomitant]
     Active Substance: PRAMIPEXOLE
  9. ANAFRANIL [Concomitant]
     Active Substance: CLOMIPRAMINE HYDROCHLORIDE
     Dosage: 50MG

REACTIONS (1)
  - Sopor [Not Recovered/Not Resolved]

NARRATIVE: CASE EVENT DATE: 20210208
